FAERS Safety Report 10629326 (Version 2)
Quarter: 2014Q4

REPORT INFORMATION
  Report Type: Spontaneous
  Country: US (occurrence: US)
  Receive Date: 20141205
  Receipt Date: 20141205
  Transmission Date: 20150529
  Serious: No
  Sender: FDA-Public Use
  Company Number: US-BRISTOL-MYERS SQUIBB COMPANY-16755571

PATIENT
  Age: 71 Year
  Sex: Male

DRUGS (2)
  1. SPRYCEL [Suspect]
     Active Substance: DASATINIB
     Indication: CHRONIC MYELOID LEUKAEMIA
     Dosage: REDUCED TO 80MG?70MG
     Dates: start: 201201
  2. FLONASE [Concomitant]
     Active Substance: FLUTICASONE PROPIONATE
     Indication: SINUS DISORDER
     Dosage: ONECE/TWICE A WK

REACTIONS (3)
  - Hypoaesthesia [Unknown]
  - Skin disorder [Unknown]
  - Feeling cold [Unknown]

NARRATIVE: CASE EVENT DATE: 2012
